FAERS Safety Report 18665503 (Version 5)
Quarter: 2022Q4

REPORT INFORMATION
  Report Type: Other
  Country: JP (occurrence: JP)
  Receive Date: 20201226
  Receipt Date: 20221005
  Transmission Date: 20230112
  Serious: Yes (Death, Life-Threatening, Hospitalization)
  Sender: FDA-Public Use
  Company Number: JP-CHUGAI-A2020055054ROCHE

PATIENT
  Age: 42 Year
  Sex: Female
  Weight: 62.9 kg

DRUGS (2)
  1. TECENTRIQ [Suspect]
     Active Substance: ATEZOLIZUMAB
     Indication: Hepatocellular carcinoma
     Dosage: 1200 MILLIGRAM, QD
     Route: 041
     Dates: start: 20201201, end: 20201201
  2. AVASTIN [Suspect]
     Active Substance: BEVACIZUMAB
     Indication: Hepatocellular carcinoma
     Route: 041
     Dates: start: 20201201, end: 20201201

REACTIONS (4)
  - Encephalopathy [Recovered/Resolved with Sequelae]
  - Altered state of consciousness [Not Recovered/Not Resolved]
  - Seizure [Recovering/Resolving]
  - Hepatocellular carcinoma [Fatal]

NARRATIVE: CASE EVENT DATE: 20201217
